FAERS Safety Report 9230942 (Version 1)
Quarter: 2013Q2

REPORT INFORMATION
  Report Type: Spontaneous
  Country: SE (occurrence: SE)
  Receive Date: 20130415
  Receipt Date: 20130415
  Transmission Date: 20140414
  Serious: Yes (Other)
  Sender: FDA-Public Use
  Company Number: SE-ASTRAZENECA-2013SE22655

PATIENT
  Age: 37 Year
  Sex: Female

DRUGS (4)
  1. OMEPRAZOLE [Suspect]
     Route: 048
     Dates: start: 20121105, end: 20121114
  2. FOLACIN (PFIZER AB) [Concomitant]
  3. COCILLANA-ETYFIN (MEDA AB) [Concomitant]
     Route: 048
  4. DRUG NOT SHOWN [Concomitant]

REACTIONS (6)
  - Thrombosis [Not Recovered/Not Resolved]
  - Joint swelling [Recovered/Resolved]
  - Chills [Recovered/Resolved]
  - Pain [Unknown]
  - Hyperhidrosis [Unknown]
  - Headache [Recovered/Resolved]
